FAERS Safety Report 11703358 (Version 2)
Quarter: 2015Q4

REPORT INFORMATION
  Report Type: Report from Study
  Country: JP (occurrence: JP)
  Receive Date: 20151105
  Receipt Date: 20151211
  Transmission Date: 20160304
  Serious: Yes (Hospitalization, Other)
  Sender: FDA-Public Use
  Company Number: JP-009507513-1510JPN015263

PATIENT
  Age: 85 Year
  Sex: Female

DRUGS (6)
  1. DIAZOXIDE [Suspect]
     Active Substance: DIAZOXIDE
     Dosage: 25 MG, BID
     Route: 048
     Dates: start: 20150709, end: 20150716
  2. LITIOMAL [Concomitant]
     Active Substance: LITHIUM CARBONATE
     Indication: BIPOLAR DISORDER
     Dosage: 400 MG, QD. DIVIDED DOSE FREQUENCY UNKNOWN
     Route: 048
     Dates: end: 20150721
  3. VALPROATE SODIUM. [Concomitant]
     Active Substance: VALPROATE SODIUM
     Indication: BIPOLAR DISORDER
     Dosage: 200 MG, QD. DIVIDED DOSE FREQUENCY UNKNOWN
     Route: 048
     Dates: end: 20150726
  4. DIAZOXIDE [Suspect]
     Active Substance: DIAZOXIDE
     Dosage: 25 MG, TID
     Route: 048
     Dates: start: 20150703, end: 20150708
  5. TERPERAN [Concomitant]
     Active Substance: METOCLOPRAMIDE HYDROCHLORIDE
     Indication: VOMITING
     Dosage: 15 MG, QD. DIVIDED DOSE FREQUENCY UNKNOWN
     Route: 048
     Dates: start: 20150702, end: 20150717
  6. DIAZOXIDE [Suspect]
     Active Substance: DIAZOXIDE
     Indication: HYPERINSULINAEMIC HYPOGLYCAEMIA
     Dosage: 50 MG, TID
     Route: 048
     Dates: start: 20150626, end: 20150702

REACTIONS (4)
  - Hyperglycaemia [Recovering/Resolving]
  - Laparoscopic surgery [Unknown]
  - Pancreaticosplenectomy [Unknown]
  - Cardiac failure [Recovering/Resolving]

NARRATIVE: CASE EVENT DATE: 20150710
